FAERS Safety Report 9452733 (Version 1)
Quarter: 2013Q3

REPORT INFORMATION
  Report Type: Spontaneous
  Country: US (occurrence: None)
  Receive Date: 20130808
  Receipt Date: 20130808
  Transmission Date: 20140515
  Serious: Yes (Life-Threatening, Hospitalization)
  Sender: FDA-Public Use
  Company Number: None

PATIENT
  Age: 58 None
  Sex: Male
  Weight: 63.1 kg

DRUGS (2)
  1. PEGINTERFERON [Suspect]
     Indication: HEPATITIS C
     Route: 058
     Dates: start: 20120812, end: 20120831
  2. RIBAVIRIN [Suspect]
     Indication: HEPATITIS C
     Route: 048
     Dates: start: 20120812, end: 20120831

REACTIONS (19)
  - Chills [None]
  - Pyrexia [None]
  - Confusional state [None]
  - Dizziness [None]
  - Fall [None]
  - Dyspnoea [None]
  - Hypoxia [None]
  - Respiratory failure [None]
  - Acid base balance abnormal [None]
  - Acute respiratory distress syndrome [None]
  - Pulmonary toxicity [None]
  - Unresponsive to stimuli [None]
  - Drug interaction [None]
  - Syncope [None]
  - Cough [None]
  - Wheezing [None]
  - Influenza like illness [None]
  - Nasopharyngitis [None]
  - Drug hypersensitivity [None]
